FAERS Safety Report 24136038 (Version 1)
Quarter: 2024Q3

REPORT INFORMATION
  Report Type: Spontaneous
  Country: GB (occurrence: GB)
  Receive Date: 20240725
  Receipt Date: 20240725
  Transmission Date: 20241017
  Serious: Yes (Other)
  Sender: PFIZER
  Company Number: None

PATIENT
  Sex: Female
  Weight: 73 kg

DRUGS (8)
  1. AROMASIN [Suspect]
     Active Substance: EXEMESTANE
     Indication: Breast cancer
     Dosage: 25MG1 TABLET 25MG ONCE A DAY WITH LUNCH
     Dates: start: 20240502
  2. ZOPICLONE [Concomitant]
     Active Substance: ZOPICLONE
     Indication: Insomnia
  3. MOMETASONE [Concomitant]
     Active Substance: MOMETASONE
     Indication: Catarrh
  4. STERIMAR ORIGINAL [Concomitant]
  5. DIETARY SUPPLEMENT\HERBALS\INDIAN FRANKINCENSE [Concomitant]
     Active Substance: DIETARY SUPPLEMENT\HERBALS\INDIAN FRANKINCENSE
     Indication: Osteoarthritis
  6. JOINTACE OMEGA 3 [Concomitant]
     Indication: Osteoarthritis
  7. VITAMINS [Concomitant]
     Active Substance: VITAMINS
  8. MELATONIN [Concomitant]
     Active Substance: MELATONIN

REACTIONS (10)
  - Myalgia [Recovered/Resolved]
  - Localised infection [Not Recovered/Not Resolved]
  - Onychomycosis [Not Recovered/Not Resolved]
  - Arthralgia [Recovering/Resolving]
  - Carpal tunnel syndrome [Recovered/Resolved]
  - Hot flush [Recovering/Resolving]
  - Dry mouth [Recovered/Resolved]
  - Pruritus [Recovered/Resolved]
  - Dyspepsia [Recovered/Resolved]
  - Fatigue [Recovering/Resolving]

NARRATIVE: CASE EVENT DATE: 20240504
